FAERS Safety Report 14643927 (Version 1)
Quarter: 2018Q1

REPORT INFORMATION
  Report Type: Spontaneous
  Country: GB (occurrence: GB)
  Receive Date: 20180315
  Receipt Date: 20180315
  Transmission Date: 20180509
  Serious: Yes (Disabling, Other)
  Sender: FDA-Public Use
  Company Number: GB-PFIZER INC-2018103908

PATIENT
  Age: 45 Year
  Sex: Female
  Weight: 53.97 kg

DRUGS (1)
  1. ATORVASTATIN CALCIUM. [Suspect]
     Active Substance: ATORVASTATIN CALCIUM
     Indication: CARDIOVASCULAR DISORDER
     Dosage: 20 MG, UNK
     Route: 048
     Dates: start: 20131017, end: 20140601

REACTIONS (6)
  - Vertigo [Recovered/Resolved with Sequelae]
  - Dizziness [Not Recovered/Not Resolved]
  - Sudden hearing loss [Recovered/Resolved with Sequelae]
  - Tinnitus [Recovered/Resolved with Sequelae]
  - Visual impairment [Unknown]
  - Vomiting [Unknown]

NARRATIVE: CASE EVENT DATE: 20140330
